FAERS Safety Report 4655461-X (Version None)
Quarter: 2005Q2

REPORT INFORMATION
  Report Type: 
  Country: None (occurrence: None)
  Receive Date: 20050505
  Receipt Date: 20050422
  Transmission Date: 20051028
  Serious: Yes (Other)
  Sender: FDA-Public Use
  Company Number: 2005060477

PATIENT
  Age: 52 Year
  Sex: Female
  Weight: 63.9572 kg

DRUGS (14)
  1. PREDNISONE TAB [Suspect]
     Indication: ILL-DEFINED DISORDER
     Dosage: 20 MG (DAILY), ORAL
     Route: 048
     Dates: start: 20040101, end: 20050414
  2. SU-011, 248 (SU-011, 248) [Suspect]
     Indication: NON-SMALL CELL LUNG CANCER
     Dosage: 50 MG (50, ONCE DAILY), ORAL
     Route: 048
     Dates: start: 20040412, end: 20050414
  3. ATORVASTATIN CALCIUM [Concomitant]
  4. LORAZEPAM [Concomitant]
  5. MECLOZINE (MECLOZINE) [Concomitant]
  6. VICODIN [Concomitant]
  7. PROCHLORPERAZINE MALEATE [Concomitant]
  8. SUMATRIPTAN SUCCINATE [Concomitant]
  9. ASCORBIC ACID (ACORBIC ACID) [Concomitant]
  10. OS-CAL (CALCIUM, ERGOCALCIFEROL) [Concomitant]
  11. TOCOPHEROL (TOCOPHEROL) [Concomitant]
  12. MULTIVIT (VITAMINS NOS) [Concomitant]
  13. FENTANYL [Concomitant]
  14. OXYCODONE (OXYCODONE) [Concomitant]

REACTIONS (1)
  - LIPASE INCREASED [None]
